FAERS Safety Report 5368060-1 (Version None)
Quarter: 2007Q2

REPORT INFORMATION
  Report Type: 
  Country: None (occurrence: None)
  Receive Date: 20070622
  Receipt Date: 20070613
  Transmission Date: 20071010
  Serious: Yes (Other)
  Sender: FDA-Public Use
  Company Number: US-GENENTECH-242971

PATIENT
  Sex: Female

DRUGS (7)
  1. BEVACIZUMAB [Suspect]
     Indication: BREAST CANCER
     Dosage: 818 MG, UNK
     Route: 042
     Dates: start: 20061102
  2. ADRIAMYCIN PFS [Suspect]
     Indication: BREAST CANCER
     Dosage: 112 MG, UNK
     Route: 042
     Dates: start: 20061102
  3. CYTOXAN [Suspect]
     Indication: BREAST CANCER
     Dosage: 1120 MG, UNK
     Route: 042
     Dates: start: 20061102
  4. NEULASTA [Suspect]
     Indication: BREAST CANCER
     Dosage: 6 MG, UNK
     Route: 058
     Dates: start: 20061103
  5. TAXOL [Suspect]
     Indication: BREAST CANCER
     Dosage: 327 MG, UNK
     Route: 042
     Dates: start: 20070104
  6. HYDROCODONE BITARTRATE [Concomitant]
     Indication: PAIN
     Route: 048
     Dates: start: 20061227, end: 20070113
  7. MEDROL [Concomitant]
     Indication: DRUG USE FOR UNKNOWN INDICATION
     Route: 048
     Dates: start: 20070105, end: 20070110

REACTIONS (1)
  - MYALGIA [None]
